FAERS Safety Report 4410888-6 (Version None)
Quarter: 2004Q3

REPORT INFORMATION
  Report Type: 
  Country: None (occurrence: None)
  Receive Date: 20040728
  Receipt Date: 20040728
  Transmission Date: 20050211
  Serious: Yes (Hospitalization)
  Sender: FDA-Public Use
  Company Number: None

PATIENT
  Age: 58 Year
  Sex: Male
  Weight: 77.3 kg

DRUGS (9)
  1. DIVALPROEX SODIUM [Suspect]
     Indication: BIPOLAR DISORDER
     Dosage: ORAL
     Route: 048
     Dates: end: 20040223
  2. RISPERIDONE [Suspect]
     Indication: BIPOLAR DISORDER
     Dosage: ORAL
     Route: 048
     Dates: end: 20040223
  3. CLONAZEPAM [Concomitant]
  4. AL HYDROXIDE/MG HYDROX/SIMETHICONE [Concomitant]
  5. MULTI-VITAMIN [Concomitant]
  6. ATENOLOL [Concomitant]
  7. MILK OF MAGNESIA TAB [Concomitant]
  8. HYDROXYZINE HCL [Concomitant]
  9. ACETAMINOPHEN [Concomitant]

REACTIONS (1)
  - HEPATITIS [None]
